FAERS Safety Report 9928513 (Version 2)
Quarter: 2014Q3

REPORT INFORMATION
  Report Type: Report from Study
  Country: CA (occurrence: CA)
  Receive Date: 20140227
  Receipt Date: 20140715
  Transmission Date: 20150326
  Serious: Yes (Other)
  Sender: FDA-Public Use
  Company Number: CA-ABBVIE-14P-028-1204933-00

PATIENT
  Age: 48 Year
  Sex: Female
  Weight: 73 kg

DRUGS (12)
  1. BLOOD TRANSFUSION, AUXILIARY PRODUCTS [Concomitant]
     Active Substance: WHOLE BLOOD
     Indication: PRODUCT USED FOR UNKNOWN INDICATION
     Dates: start: 20130915, end: 20130915
  2. FOLIC ACID. [Concomitant]
     Active Substance: FOLIC ACID
     Indication: PRODUCT USED FOR UNKNOWN INDICATION
  3. METOTREXATE [Concomitant]
     Active Substance: METHOTREXATE SODIUM
     Indication: PRODUCT USED FOR UNKNOWN INDICATION
  4. AMLODIPINE [Concomitant]
     Active Substance: AMLODIPINE BESYLATE
     Indication: PRODUCT USED FOR UNKNOWN INDICATION
     Dosage: DOSE INCREASED
  5. IRON [Concomitant]
     Active Substance: IRON
  6. HUMIRA [Suspect]
     Active Substance: ADALIMUMAB
     Route: 058
     Dates: start: 20130923, end: 20131007
  7. HUMIRA [Suspect]
     Active Substance: ADALIMUMAB
     Route: 058
     Dates: start: 201312
  8. HYDROXYCHLOROQUINE [Concomitant]
     Active Substance: HYDROXYCHLOROQUINE
     Indication: PRODUCT USED FOR UNKNOWN INDICATION
  9. HUMIRA [Suspect]
     Active Substance: ADALIMUMAB
     Indication: ANKYLOSING SPONDYLITIS
     Route: 058
     Dates: end: 20130819
  10. IRON [Concomitant]
     Active Substance: IRON
     Dates: start: 20131115, end: 20131115
  11. IRON [Concomitant]
     Active Substance: IRON
     Indication: PRODUCT USED FOR UNKNOWN INDICATION
     Dates: start: 20130227, end: 20130227
  12. IRON [Concomitant]
     Active Substance: IRON
     Dates: start: 20131003, end: 20131003

REACTIONS (19)
  - Blood creatine phosphokinase decreased [Unknown]
  - Depression [Unknown]
  - Angina pectoris [Unknown]
  - Haematocrit decreased [Unknown]
  - Pain in jaw [Unknown]
  - Hyperlipidaemia [Unknown]
  - Hysterectomy [Unknown]
  - Asthenia [Unknown]
  - Chest pain [Unknown]
  - Aspartate aminotransferase increased [Unknown]
  - Anaemia [Unknown]
  - Chest discomfort [Unknown]
  - Dizziness [Unknown]
  - Gastrooesophageal reflux disease [Unknown]
  - Alanine aminotransferase increased [Unknown]
  - Diabetes mellitus [Unknown]
  - Nausea [Unknown]
  - Pain in extremity [Unknown]
  - Mass [Unknown]

NARRATIVE: CASE EVENT DATE: 20130905
